FAERS Safety Report 4277329-3 (Version None)
Quarter: 2004Q1

REPORT INFORMATION
  Report Type: 
  Country: None (occurrence: None)
  Receive Date: 20040115
  Receipt Date: 20031201
  Transmission Date: 20041129
  Serious: Yes (Other)
  Sender: FDA-Public Use
  Company Number: 200310415BBE

PATIENT
  Sex: Female

DRUGS (2)
  1. GAMIMUNE N 10% [Suspect]
     Indication: SELECTIVE IGG SUBCLASS DEFICIENCY
     Dosage: 40 G, INTRAVENOUS
     Route: 042
  2. PROGESTERONE [Concomitant]

REACTIONS (6)
  - ABORTION SPONTANEOUS [None]
  - ASTHMA [None]
  - COMPLICATIONS OF MATERNAL EXPOSURE TO THERAPEUTIC DRUGS [None]
  - HEADACHE [None]
  - MATERNAL DRUGS AFFECTING FOETUS [None]
  - MUSCLE CRAMP [None]
